FAERS Safety Report 16787698 (Version 3)
Quarter: 2020Q1

REPORT INFORMATION
  Report Type: Report from Study
  Country: BE (occurrence: BE)
  Receive Date: 20190909
  Receipt Date: 20200210
  Transmission Date: 20200409
  Serious: Yes (Death, Hospitalization)
  Sender: FDA-Public Use
  Company Number: BE-EISAI MEDICAL RESEARCH-EC-2019-051966

PATIENT
  Age: 65 Year
  Sex: Female
  Weight: 56 kg

DRUGS (6)
  1. LENVATINIB [Suspect]
     Active Substance: LENVATINIB
     Indication: THYROID CANCER
     Route: 048
     Dates: start: 20181110, end: 20190830
  2. ATORVASTATIN [Concomitant]
     Active Substance: ATORVASTATIN
  3. BRILIQUE [Concomitant]
     Active Substance: TICAGRELOR
  4. L-THYROXINE [Concomitant]
     Active Substance: LEVOTHYROXINE
  5. CARDIOASPIRIN [Concomitant]
     Active Substance: ASPIRIN
  6. SIPRALEXA [Concomitant]
     Active Substance: ESCITALOPRAM OXALATE

REACTIONS (3)
  - Myocardial infarction [Recovered/Resolved]
  - Respiratory distress [Fatal]
  - Cardiac failure [Not Recovered/Not Resolved]

NARRATIVE: CASE EVENT DATE: 20190115
